FAERS Safety Report 6964101-6 (Version None)
Quarter: 2010Q3

REPORT INFORMATION
  Report Type: 
  Country: None (occurrence: None)
  Receive Date: 20100902
  Receipt Date: 20100823
  Transmission Date: 20110219
  Serious: Yes (Other)
  Sender: FDA-Public Use
  Company Number: NL-MYLANLABS-2010S1015270

PATIENT
  Age: 87 Year
  Sex: Female

DRUGS (3)
  1. ATENOLOL/CHLORTALIDONE TABLETS [Suspect]
     Indication: HYPERTENSION
     Dosage: ATENOLOL 50MG/ CHLORTALIDONE 12.5MG
     Route: 065
  2. LOSARTAN [Concomitant]
     Indication: HYPERTENSION
     Route: 065
  3. NITROFURANTOIN [Concomitant]
     Indication: URINARY TRACT INFECTION
     Route: 065

REACTIONS (3)
  - ANXIETY [None]
  - CONFUSIONAL STATE [None]
  - HYPONATRAEMIA [None]
